FAERS Safety Report 18975574 (Version 2)
Quarter: 2021Q4

REPORT INFORMATION
  Report Type: Spontaneous
  Country: JP (occurrence: JP)
  Receive Date: 20210305
  Receipt Date: 20211027
  Transmission Date: 20220303
  Serious: Yes (Death, Hospitalization)
  Sender: FDA-Public Use
  Company Number: JP-ELI_LILLY_AND_COMPANY-JP202103000543

PATIENT
  Age: 71 Year
  Sex: Female
  Weight: 51.8 kg

DRUGS (47)
  1. CIALIS [Suspect]
     Active Substance: TADALAFIL
     Indication: Pulmonary arterial hypertension
     Dosage: 20 MG, DAILY
     Route: 065
     Dates: start: 20180316, end: 20180331
  2. UPTRAVI [Suspect]
     Active Substance: SELEXIPAG
     Indication: Pulmonary arterial hypertension
     Dosage: 0.4 MG, DAILY
     Route: 048
     Dates: start: 20171110, end: 20171225
  3. UPTRAVI [Suspect]
     Active Substance: SELEXIPAG
     Dosage: 0.8 MG, DAILY
     Route: 048
     Dates: start: 20171226, end: 20180308
  4. UPTRAVI [Suspect]
     Active Substance: SELEXIPAG
     Dosage: 1.2 MG, DAILY
     Route: 048
     Dates: start: 20180309, end: 20180331
  5. OPSUMIT [Suspect]
     Active Substance: MACITENTAN
     Indication: Pulmonary arterial hypertension
     Dosage: 10 MG, DAILY
     Route: 048
     Dates: start: 20180210, end: 20180331
  6. PREDNISOLONE [Suspect]
     Active Substance: PREDNISOLONE
     Indication: Systemic scleroderma
     Dosage: 30 MG, DAILY
     Route: 048
     Dates: start: 20180203, end: 20180216
  7. PREDNISOLONE [Suspect]
     Active Substance: PREDNISOLONE
     Dosage: 25 MG, DAILY
     Route: 048
     Dates: start: 20180217, end: 20180221
  8. PREDNISOLONE [Suspect]
     Active Substance: PREDNISOLONE
     Dosage: 25 MG, DAILY
     Route: 048
     Dates: start: 20180222, end: 20180228
  9. PREDNISOLONE [Suspect]
     Active Substance: PREDNISOLONE
     Dosage: 25 MG, DAILY
     Route: 048
     Dates: start: 20180301, end: 20180301
  10. PREDNISOLONE [Suspect]
     Active Substance: PREDNISOLONE
     Dosage: 25 MG, DAILY
     Route: 048
     Dates: start: 20180308, end: 20180320
  11. PREDNISOLONE [Suspect]
     Active Substance: PREDNISOLONE
     Dosage: 25 MG, DAILY
     Route: 048
     Dates: start: 20180321, end: 20180331
  12. NORSPAN [Suspect]
     Active Substance: BUPRENORPHINE
     Indication: Pain
     Dosage: 5 MG, WEEKLY
     Route: 065
     Dates: start: 20180219, end: 20180305
  13. NORSPAN [Suspect]
     Active Substance: BUPRENORPHINE
     Dosage: 10 MG, WEEKLY
     Route: 065
     Dates: start: 20180313, end: 20180313
  14. NORSPAN [Suspect]
     Active Substance: BUPRENORPHINE
     Dosage: 15 MG, WEEKLY
     Route: 065
     Dates: start: 20180319, end: 20180326
  15. TRAMADOL [Suspect]
     Active Substance: TRAMADOL
     Indication: Pain
     Dosage: 50 MG, DAILY
     Route: 048
     Dates: start: 20180225, end: 20180302
  16. TRAMADOL [Suspect]
     Active Substance: TRAMADOL
     Dosage: 100 MG, DAILY
     Route: 048
     Dates: start: 20180303, end: 20180307
  17. OLOPATADINE HYDROCHLORIDE [Concomitant]
     Active Substance: OLOPATADINE HYDROCHLORIDE
     Indication: Pruritus
     Dosage: 5 MG, DAILY
     Route: 065
     Dates: start: 20180205, end: 20180331
  18. LYRICA [Concomitant]
     Active Substance: PREGABALIN
     Indication: Neuralgia
     Dosage: 125 MG, DAILY
     Route: 065
     Dates: end: 20180331
  19. FUROSEMIDE [Concomitant]
     Active Substance: FUROSEMIDE
     Indication: Cardiac failure
     Dosage: 20 MG, DAILY
     Route: 065
     Dates: end: 20180220
  20. FUROSEMIDE [Concomitant]
     Active Substance: FUROSEMIDE
     Dosage: 40 MG, DAILY
     Route: 065
     Dates: start: 20180221, end: 20180331
  21. ETIZOLAM [Concomitant]
     Active Substance: ETIZOLAM
     Indication: Insomnia
     Dosage: 1 MG, UNKNOWN
     Route: 065
     Dates: end: 20180221
  22. ZOLPIDEM TARTRATE [Concomitant]
     Active Substance: ZOLPIDEM TARTRATE
     Indication: Insomnia
     Dosage: 5 MG, DAILY
     Route: 065
     Dates: end: 20180216
  23. LANSOPRAZOLE [Concomitant]
     Active Substance: LANSOPRAZOLE
     Indication: Gastrooesophageal reflux disease
     Dosage: 15 MG, DAILY
     Route: 065
     Dates: end: 20180331
  24. FEBUXOSTAT [Concomitant]
     Active Substance: FEBUXOSTAT
     Indication: Hyperuricaemia
     Dosage: 40 MG, DAILY
     Route: 065
     Dates: end: 20180331
  25. LEVOTHYROXINE SODIUM [Concomitant]
     Active Substance: LEVOTHYROXINE SODIUM
     Indication: Hypothyroidism
     Dosage: 62.5 UG, UNKNOWN
     Route: 065
     Dates: end: 20180331
  26. ASPIRIN [Concomitant]
     Active Substance: ASPIRIN
     Indication: Cardiac failure
     Dosage: 100 MG, DAILY
     Route: 065
     Dates: end: 20180331
  27. BISOPROLOL FUMARATE [Concomitant]
     Active Substance: BISOPROLOL FUMARATE
     Indication: Cardiac failure
     Dosage: 5 MG, DAILY
     Route: 065
     Dates: end: 20180331
  28. CORTRIL [Concomitant]
     Active Substance: HYDROCORTISONE
     Indication: Product used for unknown indication
     Dosage: 15 MG, DAILY
     Route: 065
  29. TELMISARTAN [Concomitant]
     Active Substance: TELMISARTAN
     Indication: Hypertension
     Dosage: 40 MG, DAILY
     Route: 065
     Dates: start: 20171121, end: 20171127
  30. TELMISARTAN [Concomitant]
     Active Substance: TELMISARTAN
     Dosage: 80 MG, DAILY
     Route: 065
     Dates: start: 20171128, end: 20180210
  31. TELMISARTAN [Concomitant]
     Active Substance: TELMISARTAN
     Dosage: 80 MG, DAILY
     Route: 065
     Dates: start: 20180211, end: 20180331
  32. HYDROCHLOROTHIAZIDE [Concomitant]
     Active Substance: HYDROCHLOROTHIAZIDE
     Indication: Cardiac failure
     Dosage: 12.5 MG, DAILY
     Route: 065
     Dates: start: 20180123, end: 20180209
  33. SAMSCA [Concomitant]
     Active Substance: TOLVAPTAN
     Indication: Cardiac failure
     Dosage: 7.5 MG, DAILY
     Route: 065
     Dates: start: 20180210, end: 20180227
  34. SAMSCA [Concomitant]
     Active Substance: TOLVAPTAN
     Dosage: 7.5 MG, DAILY
     Route: 065
     Dates: start: 20180301, end: 20180331
  35. BELSOMRA [Concomitant]
     Active Substance: SUVOREXANT
     Indication: Insomnia
     Dosage: 15 MG, DAILY
     Route: 065
     Dates: start: 20180206, end: 20180331
  36. ACETAMINOPHEN [Concomitant]
     Active Substance: ACETAMINOPHEN
     Indication: Pain
     Dosage: 200 MG, UNKNOWN
     Route: 065
     Dates: start: 20180209, end: 20180307
  37. ALFACALCIDOL [Concomitant]
     Active Substance: ALFACALCIDOL
     Indication: Osteoporosis
     Dosage: 0.25 UG, DAILY
     Route: 065
     Dates: end: 20180331
  38. LOXOPROFEN [Concomitant]
     Active Substance: LOXOPROFEN
     Indication: Pain
     Dosage: 120 MG, DAILY
     Route: 065
     Dates: end: 20180224
  39. REBAMIPIDE [Concomitant]
     Active Substance: REBAMIPIDE
     Indication: Gastritis
     Dosage: 200 MG, DAILY
     Route: 065
     Dates: end: 20180224
  40. SODIUM FERROUS CITRATE [Concomitant]
     Active Substance: SODIUM FERROUS CITRATE
     Indication: Anaemia
     Dosage: 50 MG, UNKNOWN
     Route: 065
     Dates: start: 20180303, end: 20180331
  41. BONALON [Concomitant]
     Active Substance: ALENDRONATE SODIUM
     Indication: Osteoporosis
     Dosage: UNK, UNKNOWN
     Route: 065
     Dates: start: 20180302, end: 20180330
  42. TRAMCET [Concomitant]
     Active Substance: ACETAMINOPHEN\TRAMADOL
     Indication: Pain
     Dosage: 4 DOSAGE FORM, DAILY
     Route: 065
     Dates: start: 20180307, end: 20180331
  43. CEPHALEXIN [Concomitant]
     Active Substance: CEPHALEXIN
     Indication: Interstitial lung disease
     Dosage: 750 MG, DAILY
     Route: 065
     Dates: start: 20180307, end: 20180311
  44. AMPICILLIN SODIUM\SULBACTAM SODIUM [Concomitant]
     Active Substance: AMPICILLIN SODIUM\SULBACTAM SODIUM
     Indication: Pneumonia
     Dosage: UNK, UNKNOWN
     Route: 065
     Dates: start: 20180311, end: 20180316
  45. AMPICILLIN SODIUM\SULBACTAM SODIUM [Concomitant]
     Active Substance: AMPICILLIN SODIUM\SULBACTAM SODIUM
     Dosage: 3 G, DAILY
     Route: 065
     Dates: start: 20180331, end: 20180401
  46. MEROPENEM [Concomitant]
     Active Substance: MEROPENEM
     Indication: Pneumonia
     Dosage: 1 G, DAILY
     Route: 065
     Dates: start: 20180316, end: 20180319
  47. PREDNISOLONE SODIUM SUCCINATE [Concomitant]
     Active Substance: PREDNISOLONE SODIUM SUCCINATE
     Indication: Systemic scleroderma
     Dosage: 30 MG, DAILY
     Route: 065
     Dates: start: 20180401, end: 20180401

REACTIONS (8)
  - Cardiac failure [Fatal]
  - Pneumonia [Fatal]
  - Pulmonary arterial hypertension [Fatal]
  - General physical health deterioration [Fatal]
  - Anaemia [Not Recovered/Not Resolved]
  - Fluid retention [Not Recovered/Not Resolved]
  - Hepatic function abnormal [Not Recovered/Not Resolved]
  - Cellulitis [Recovering/Resolving]

NARRATIVE: CASE EVENT DATE: 20180220
